FAERS Safety Report 5005000-9 (Version None)
Quarter: 2006Q1

REPORT INFORMATION
  Report Type: 
  Country: None (occurrence: None)
  Receive Date: 20060327
  Receipt Date: 20060221
  Transmission Date: 20060701
  Serious: No
  Sender: FDA-Public Use
  Company Number: SP00784

PATIENT
  Age: 50 Year
  Sex: Female

DRUGS (1)
  1. XIFAXAN [Suspect]
     Indication: ACCIDENTAL OVERDOSE
     Dosage: 21 TABS/ONCE, ORAL
     Route: 048
     Dates: start: 20060220, end: 20060220

REACTIONS (2)
  - ACCIDENTAL OVERDOSE [None]
  - NAUSEA [None]
